FAERS Safety Report 4384812-9 (Version None)
Quarter: 2004Q2

REPORT INFORMATION
  Report Type: 
  Country: None (occurrence: None)
  Receive Date: 20040623
  Receipt Date: 20040618
  Transmission Date: 20050107
  Serious: Yes (Hospitalization)
  Sender: FDA-Public Use
  Company Number: 04-06-0873

PATIENT
  Age: 21 Year
  Sex: Male

DRUGS (3)
  1. CLOZAPINE [Suspect]
     Indication: SCHIZOPHRENIA, PARANOID TYPE
     Dosage: 150-300MG QD ORAL
     Route: 048
  2. OLANZAPINE [Concomitant]
  3. AMITRIPTYLINE HCL [Concomitant]

REACTIONS (21)
  - ANOREXIA [None]
  - ARTHRALGIA [None]
  - BODY TEMPERATURE INCREASED [None]
  - CARDIOMEGALY [None]
  - CHEST PAIN [None]
  - COUGH [None]
  - DYSPNOEA [None]
  - HEADACHE [None]
  - HEART RATE INCREASED [None]
  - INFLUENZA LIKE ILLNESS [None]
  - MALAISE [None]
  - NAUSEA [None]
  - PERICARDIAL EFFUSION [None]
  - PLEURAL EFFUSION [None]
  - PLEURISY [None]
  - PLEURITIC PAIN [None]
  - RED BLOOD CELL SEDIMENTATION RATE INCREASED [None]
  - RESPIRATORY RATE INCREASED [None]
  - SALIVARY HYPERSECRETION [None]
  - UPPER RESPIRATORY TRACT INFECTION [None]
  - WHITE BLOOD CELL COUNT INCREASED [None]
